FAERS Safety Report 18686142 (Version 1)
Quarter: 2020Q4

REPORT INFORMATION
  Report Type: Spontaneous
  Country: DE (occurrence: JP)
  Receive Date: 20201230
  Receipt Date: 20201230
  Transmission Date: 20210114
  Serious: Yes (Other)
  Sender: FDA-Public Use
  Company Number: JP-ELI_LILLY_AND_COMPANY-JP202012014125

PATIENT
  Age: 41 Year
  Sex: Male

DRUGS (3)
  1. 5-FLUOROURACIL [FLUOROURACIL SODIUM] [Concomitant]
     Active Substance: FLUOROURACIL SODIUM
     Indication: ADENOCARCINOMA OF COLON
     Dosage: UNK UNK, UNKNOWN
     Route: 065
  2. CALCIUM LEVOFOLINATE PENTAHYDRATE [Concomitant]
     Active Substance: LEVOLEUCOVORIN CALCIUM
     Indication: ADENOCARCINOMA OF COLON
     Dosage: UNK UNK, UNKNOWN
     Route: 065
  3. ERBITUX [Suspect]
     Active Substance: CETUXIMAB
     Indication: ADENOCARCINOMA OF COLON
     Dosage: UNK UNK, UNKNOWN
     Route: 065

REACTIONS (2)
  - Hypomagnesaemia [Unknown]
  - Anaemia [Unknown]
